FAERS Safety Report 8432714-0 (Version None)
Quarter: 2012Q2

REPORT INFORMATION
  Report Type: 
  Country: None (occurrence: None)
  Receive Date: 20120323
  Receipt Date: 20110817
  Transmission Date: 20120825
  Serious: Yes (Death)
  Sender: FDA-Public Use
  Company Number: 163-21880-11060576

PATIENT
  Age: 54 Year
  Sex: Male

DRUGS (6)
  1. CALCIUM D (OS-CAL) [Concomitant]
  2. MS CONTIN [Concomitant]
  3. MS CONTIN [Concomitant]
  4. REVLIMID [Suspect]
     Indication: MULTIPLE MYELOMA
     Dosage: 25 MG, 1 IN 1 D, PO
     Route: 048
     Dates: start: 20110510, end: 20110602
  5. COLACE (DOCUSATE SODIUM) [Concomitant]
  6. DECADRON [Concomitant]

REACTIONS (1)
  - PULMONARY EMBOLISM [None]
